FAERS Safety Report 8424599-3 (Version None)
Quarter: 2012Q2

REPORT INFORMATION
  Report Type: 
  Country: None (occurrence: None)
  Receive Date: 20120611
  Receipt Date: 20120606
  Transmission Date: 20120825
  Serious: Yes (Hospitalization)
  Sender: FDA-Public Use
  Company Number: TW-GE HEALTHCARE MEDICAL DIAGNOSTICS-OMPQ-NO-1206L-0568

PATIENT
  Age: 80 Year
  Sex: Male

DRUGS (1)
  1. OMNIPAQUE 140 [Suspect]
     Indication: CORONARY ARTERY STENOSIS
     Route: 013
     Dates: start: 20080101, end: 20080101

REACTIONS (5)
  - HEMIPARESIS [None]
  - ENCEPHALOPATHY [None]
  - MUSCULAR WEAKNESS [None]
  - HYPOAESTHESIA [None]
  - COMPUTERISED TOMOGRAM ABNORMAL [None]
